FAERS Safety Report 10208797 (Version 1)
Quarter: 2014Q2

REPORT INFORMATION
  Report Type: Spontaneous
  Country: US (occurrence: US)
  Receive Date: 20140530
  Receipt Date: 20140530
  Transmission Date: 20141212
  Serious: Yes (Hospitalization)
  Sender: FDA-Public Use
  Company Number: US-INCYTE CORPORATION-2014IN001433

PATIENT
  Age: 67 Year
  Sex: Male

DRUGS (6)
  1. JAKAFI [Suspect]
     Dosage: 10 MG, BID
     Dates: start: 20140301
  2. VIAGRA [Concomitant]
  3. VITAMIN D NOS [Concomitant]
  4. ZYRTEC [Concomitant]
  5. FUROSEMIDE [Concomitant]
  6. SPIRONOLACTONE [Concomitant]

REACTIONS (1)
  - Hospitalisation [Unknown]
